FAERS Safety Report 5362153-0 (Version None)
Quarter: 2007Q2

REPORT INFORMATION
  Report Type: 
  Country: None (occurrence: None)
  Receive Date: 20070619
  Receipt Date: 20070607
  Transmission Date: 20071010
  Serious: Yes (Hospitalization)
  Sender: FDA-Public Use
  Company Number: US-GENENTECH-242506

PATIENT
  Sex: Female
  Weight: 73.696 kg

DRUGS (4)
  1. BEVACIZUMAB [Suspect]
     Indication: NON-SMALL CELL LUNG CANCER
     Dosage: 1177 MG, Q3W
     Route: 042
     Dates: start: 20070306, end: 20070514
  2. DOCETAXEL [Suspect]
     Indication: NON-SMALL CELL LUNG CANCER
     Dosage: 75 MG/M2, Q3W
     Route: 042
     Dates: start: 20070306
  3. CARBOPLATIN [Suspect]
     Indication: NON-SMALL CELL LUNG CANCER
     Dosage: 6 AUC, Q3W
     Route: 042
     Dates: start: 20070306
  4. COUMADIN [Concomitant]
     Indication: DRUG USE FOR UNKNOWN INDICATION
     Dosage: 2 MG, QD

REACTIONS (2)
  - COUGH [None]
  - PYREXIA [None]
